FAERS Safety Report 9729480 (Version 1)
Quarter: 2013Q4

REPORT INFORMATION
  Report Type: Spontaneous
  Country: US (occurrence: US)
  Receive Date: 20131204
  Receipt Date: 20131204
  Transmission Date: 20140711
  Serious: No
  Sender: FDA-Public Use
  Company Number: US-GILEAD-2009-0021654

PATIENT
  Sex: Male
  Weight: 47.99 kg

DRUGS (4)
  1. LETAIRIS [Suspect]
     Indication: PULMONARY ARTERIAL HYPERTENSION
     Route: 048
     Dates: start: 20070910
  2. REVATIO [Concomitant]
  3. COUMADIN [Concomitant]
  4. PREVACID [Concomitant]

REACTIONS (1)
  - Fatigue [Unknown]
